FAERS Safety Report 8118451-0 (Version None)
Quarter: 2011Q4

REPORT INFORMATION
  Report Type: 
  Country: None (occurrence: None)
  Receive Date: 20111227
  Receipt Date: 20111012
  Transmission Date: 20120403
  Serious: No
  Sender: FDA-Public Use
  Company Number: PHEH2011US06977

PATIENT
  Sex: Female
  Weight: 62.6 kg

DRUGS (1)
  1. GILENYA [Suspect]
     Indication: MULTIPLE SCLEROSIS
     Dosage: 0.5 MG, DAILY, ORAL
     Route: 048
     Dates: start: 20110823

REACTIONS (4)
  - BLOOD PRESSURE INCREASED [None]
  - INCONTINENCE [None]
  - OEDEMA PERIPHERAL [None]
  - JOINT SWELLING [None]
